FAERS Safety Report 4305819-3 (Version None)
Quarter: 2004Q1

REPORT INFORMATION
  Report Type: 
  Country: None (occurrence: None)
  Receive Date: 20040225
  Receipt Date: 20040213
  Transmission Date: 20041129
  Serious: Yes (Death)
  Sender: FDA-Public Use
  Company Number: US-JNJFOC-20031204860

PATIENT
  Age: 45 Year
  Sex: Male

DRUGS (8)
  1. DURAGESIC [Suspect]
     Indication: PAIN
     Dosage: SEE IMAGE
     Route: 062
     Dates: end: 20031209
  2. DURAGESIC [Suspect]
     Indication: PAIN
     Dosage: SEE IMAGE
     Route: 062
     Dates: start: 20000101
  3. GABAPENTIN (GABAPENTIN) CAPSULES [Concomitant]
  4. GABAPENTIN [Concomitant]
  5. DIAZEPAM (TABLETS) DIAZEPAM [Concomitant]
  6. TRIZIVIR [Concomitant]
  7. TENOFOVIR (TENOFOVIR) [Concomitant]
  8. MS CONTIN (MORPHINE SULFATE) TABLETS [Concomitant]

REACTIONS (1)
  - CARDIAC DEATH [None]
